FAERS Safety Report 8518925-4 (Version None)
Quarter: 2012Q3

REPORT INFORMATION
  Report Type: 
  Country: None (occurrence: None)
  Receive Date: 20120718
  Receipt Date: 20120713
  Transmission Date: 20120928
  Serious: Yes (Death)
  Sender: FDA-Public Use
  Company Number: US-VIIV HEALTHCARE LIMITED-A0984448A

PATIENT
  Age: 81 Year
  Sex: Female

DRUGS (6)
  1. DIABETES MEDICATION [Concomitant]
  2. HEART MEDICATION [Concomitant]
  3. EPIVIR [Suspect]
     Indication: HIV INFECTION
     Dosage: 150MG PER DAY
     Route: 048
     Dates: start: 20110101, end: 20120701
  4. ZIAGEN [Suspect]
     Indication: HIV INFECTION
     Dosage: 600MG PER DAY
     Route: 048
     Dates: start: 20110101, end: 20120701
  5. REYATAZ [Concomitant]
  6. BLOOD PRESSURE MEDICATION [Concomitant]

REACTIONS (1)
  - DEATH [None]
